FAERS Safety Report 23354412 (Version 1)
Quarter: 2024Q1

REPORT INFORMATION
  Report Type: Spontaneous
  Country: IT (occurrence: IT)
  Receive Date: 20240101
  Receipt Date: 20240101
  Transmission Date: 20240410
  Serious: Yes (Other)
  Sender: FDA-Public Use
  Company Number: None

PATIENT
  Age: 21 Year
  Sex: Female

DRUGS (1)
  1. IVABRADINE [Suspect]
     Active Substance: IVABRADINE
     Indication: Product used for unknown indication
     Dosage: 45 MILLIGRAM, QD (THE PATIENT TOOK 9 TABLETS OF THE SUSPECTED DRUG)
     Route: 048
     Dates: start: 20230922, end: 20230922

REACTIONS (4)
  - Toxicity to various agents [Recovering/Resolving]
  - Drug abuse [Recovered/Resolved]
  - Abdominal pain upper [Recovering/Resolving]
  - Overdose [Recovered/Resolved]

NARRATIVE: CASE EVENT DATE: 20230922
